FAERS Safety Report 8095763-0 (Version None)
Quarter: 2012Q1

REPORT INFORMATION
  Report Type: 
  Country: None (occurrence: None)
  Receive Date: 20120129
  Receipt Date: 20111227
  Transmission Date: 20120608
  Serious: No
  Sender: FDA-Public Use
  Company Number: US-ABBOTT-11P-163-0886884-00

PATIENT
  Sex: Female
  Weight: 72.186 kg

DRUGS (9)
  1. HUMIRA [Suspect]
     Indication: PSORIASIS
     Route: 058
     Dates: start: 20110801
  2. ALBUTEROL [Concomitant]
     Indication: CHRONIC OBSTRUCTIVE PULMONARY DISEASE
     Dosage: 0.083% VIA NEB FOUR TIMES A DAY
  3. PROAIR HFA [Concomitant]
     Indication: CHRONIC OBSTRUCTIVE PULMONARY DISEASE
     Dosage: NOT REPORTED
  4. ADVAIR DISKUS 100/50 [Concomitant]
     Indication: CHRONIC OBSTRUCTIVE PULMONARY DISEASE
     Dosage: NOT REPORTED
  5. HUMIRA [Suspect]
     Indication: PSORIATIC ARTHROPATHY
  6. SPIRIVA [Concomitant]
     Indication: CHRONIC OBSTRUCTIVE PULMONARY DISEASE
     Dosage: NOT REPORTED
     Route: 048
  7. RANITIDINE [Concomitant]
     Indication: GASTROOESOPHAGEAL REFLUX DISEASE
     Dosage: NOT REPORTED
  8. METHOTREXATE [Concomitant]
     Indication: RHEUMATOID ARTHRITIS
     Dosage: UNREPORTED DOSE: ONCE A WEEK
  9. OTC SINUS MEDICATION [Concomitant]
     Indication: SEASONAL ALLERGY
     Dosage: NOT REPORTED

REACTIONS (16)
  - PULMONARY OEDEMA [None]
  - ACCIDENTAL EXPOSURE [None]
  - SMOKE SENSITIVITY [None]
  - INCORRECT DOSE ADMINISTERED [None]
  - VISUAL IMPAIRMENT [None]
  - IMPAIRED HEALING [None]
  - RESPIRATORY FUME INHALATION DISORDER [None]
  - DEVICE MALFUNCTION [None]
  - EXPOSURE TO TOXIC AGENT [None]
  - JOINT STIFFNESS [None]
  - SKIN BURNING SENSATION [None]
  - CATARACT [None]
  - PNEUMONIA [None]
  - DYSPNOEA [None]
  - OEDEMA PERIPHERAL [None]
  - WRONG TECHNIQUE IN DRUG USAGE PROCESS [None]
